FAERS Safety Report 4705215-0 (Version None)
Quarter: 2005Q2

REPORT INFORMATION
  Report Type: 
  Country: None (occurrence: None)
  Receive Date: 20050628
  Receipt Date: 20050608
  Transmission Date: 20051028
  Serious: Yes (Death, Hospitalization)
  Sender: FDA-Public Use
  Company Number: GBWYE731509JUN05

PATIENT
  Age: 72 Year
  Sex: Female

DRUGS (3)
  1. DIAMOX [Suspect]
     Dosage: 2 CAPSULES ORAL
     Route: 048
  2. FUROSEMIDE [Concomitant]
  3. IRBESARTAN [Concomitant]

REACTIONS (4)
  - CARDIAC FAILURE ACUTE [None]
  - DIZZINESS [None]
  - DYSPNOEA [None]
  - RESPIRATORY ARREST [None]
